FAERS Safety Report 6760714-5 (Version None)
Quarter: 2010Q2

REPORT INFORMATION
  Report Type: 
  Country: None (occurrence: None)
  Receive Date: 20100607
  Receipt Date: 20100607
  Transmission Date: 20101027
  Serious: Yes (Life-Threatening, Other)
  Sender: FDA-Public Use
  Company Number: None

PATIENT
  Age: 58 Year
  Sex: Female
  Weight: 63 kg

DRUGS (1)
  1. DYSPORT [Suspect]
     Indication: SKIN WRINKLING
     Dosage: 45 UNITS

REACTIONS (28)
  - ANXIETY [None]
  - BLADDER IRRITATION [None]
  - BURNING SENSATION [None]
  - CHEST DISCOMFORT [None]
  - DISORIENTATION [None]
  - DIZZINESS [None]
  - DRY MOUTH [None]
  - DYSARTHRIA [None]
  - DYSPHAGIA [None]
  - DYSPNOEA [None]
  - EATING DISORDER [None]
  - EYE SWELLING [None]
  - FACIAL PALSY [None]
  - FEAR [None]
  - FEELING HOT [None]
  - HEADACHE [None]
  - IMPAIRED WORK ABILITY [None]
  - MALAISE [None]
  - MOVEMENT DISORDER [None]
  - MUSCLE TIGHTNESS [None]
  - OEDEMA MOUTH [None]
  - ORAL DISORDER [None]
  - RASH [None]
  - RASH PRURITIC [None]
  - SINUS DISORDER [None]
  - SKIN DISORDER [None]
  - SLEEP DISORDER [None]
  - SPEECH DISORDER [None]
